FAERS Safety Report 6463955-X (Version None)
Quarter: 2009Q4

REPORT INFORMATION
  Report Type: 
  Country: None (occurrence: None)
  Receive Date: 20091201
  Receipt Date: 20091125
  Transmission Date: 20100525
  Serious: Yes (Other)
  Sender: FDA-Public Use
  Company Number: FI-ROCHE-671068

PATIENT
  Sex: Male

DRUGS (3)
  1. TAMIFLU [Suspect]
     Indication: INFLUENZA
     Dosage: FREQUENCY : 1X2
     Route: 048
     Dates: start: 20091113, end: 20091115
  2. FLIXOTIDE [Concomitant]
     Indication: ASTHMA
     Dosage: FREQUENCY : 1X2
     Route: 055
  3. VENTOLIN [Concomitant]
     Indication: ASTHMA
     Dosage: FREQUENCY 1X4
     Route: 055
     Dates: start: 20091112

REACTIONS (4)
  - AGGRESSION [None]
  - COMA [None]
  - EUPHORIC MOOD [None]
  - HALLUCINATION, VISUAL [None]
